FAERS Safety Report 5787681-5 (Version None)
Quarter: 2008Q2

REPORT INFORMATION
  Report Type: 
  Country: None (occurrence: None)
  Receive Date: 20080624
  Receipt Date: 20080624
  Transmission Date: 20081010
  Serious: Yes (Hospitalization)
  Sender: FDA-Public Use
  Company Number: None

PATIENT
  Age: 66 Year
  Sex: Male
  Weight: 85 kg

DRUGS (2)
  1. IOHEXOL [Suspect]
     Indication: SURGERY
     Dosage: 45 ML ONCE IV
     Route: 042
     Dates: start: 20080602, end: 20080602
  2. MIDAZOLAM HCL [Suspect]
     Indication: SURGERY
     Dosage: 1 MG ONCE IV
     Route: 042
     Dates: start: 20080602, end: 20080602

REACTIONS (4)
  - ACUTE RESPIRATORY DISTRESS SYNDROME [None]
  - MUSCULAR WEAKNESS [None]
  - NAUSEA [None]
  - VOMITING [None]
